FAERS Safety Report 5163564-9 (Version None)
Quarter: 2006Q4

REPORT INFORMATION
  Report Type: 
  Country: None (occurrence: None)
  Receive Date: 20061124
  Receipt Date: 20061115
  Transmission Date: 20070319
  Serious: Yes (Hospitalization, Other)
  Sender: FDA-Public Use
  Company Number: 2006141392

PATIENT
  Age: 75 Year
  Sex: Male
  Weight: 79.3795 kg

DRUGS (3)
  1. LIPITOR [Suspect]
     Indication: ATRIAL FIBRILLATION
     Dosage: 10 MG (10 MG, 1 IN 1 D)
  2. WARFARIN SODIUM [Concomitant]
  3. DIGOXIN [Concomitant]

REACTIONS (1)
  - LUNG NEOPLASM [None]
